FAERS Safety Report 9252537 (Version 1)
Quarter: 2013Q1

REPORT INFORMATION
  Report Type: Spontaneous
  Country: US (occurrence: None)
  Receive Date: 20130305
  Receipt Date: 20130305
  Transmission Date: 20140127
  Serious: Yes (Other)
  Sender: FDA-Public Use
  Company Number: 163-201880-12082868

PATIENT
  Age: 65 Year
  Sex: Male
  Weight: 80.29 kg

DRUGS (7)
  1. REVLIMID [Suspect]
     Indication: PLASMA CELL MYELOMA
     Dosage: 10 MG, 21 IN 28 D, PO
     Route: 048
     Dates: start: 20110303
  2. ASPIRIN (ACETYLSALICYLIC ACID) [Concomitant]
  3. LIPITOR (ATORVASTATIN) [Concomitant]
  4. LYRICA(PREGABALIN) [Concomitant]
  5. METOPROLOL(METOPROLOL) [Concomitant]
  6. OMEGA-3(OMEGA-3 TRIGLYCERIDES) [Concomitant]
  7. VITAMIN B-12(CYANOCOBALAMIN) [Concomitant]

REACTIONS (1)
  - Muscle spasms [None]
